FAERS Safety Report 25444987 (Version 1)
Quarter: 2025Q2

REPORT INFORMATION
  Report Type: Spontaneous
  Country: CA (occurrence: CA)
  Receive Date: 20250617
  Receipt Date: 20250617
  Transmission Date: 20250716
  Serious: Yes (Hospitalization)
  Sender: PHARMACOSMOS A/S
  Company Number: None

PATIENT
  Age: 44 Year
  Sex: Female
  Weight: 76 kg

DRUGS (1)
  1. MONOFERRIC [Suspect]
     Active Substance: FERRIC DERISOMALTOSE
     Indication: Anaemia

REACTIONS (2)
  - Hernia [Unknown]
  - Fatigue [Unknown]
